FAERS Safety Report 11107260 (Version 2)
Quarter: 2015Q2

REPORT INFORMATION
  Report Type: Spontaneous
  Country: US (occurrence: US)
  Receive Date: 20150512
  Receipt Date: 20150612
  Transmission Date: 20150821
  Serious: Yes (Other)
  Sender: FDA-Public Use
  Company Number: US-PFIZER INC-2015158320

PATIENT
  Age: 68 Year
  Sex: Female
  Weight: 58 kg

DRUGS (4)
  1. LIPITOR [Suspect]
     Active Substance: ATORVASTATIN CALCIUM
     Indication: BLOOD CHOLESTEROL INCREASED
     Dosage: 10 MG, 1X/DAY (HALF OF 20 MG PILL DAILY)
     Route: 048
     Dates: start: 200211, end: 201009
  2. CALCIUM [Concomitant]
     Active Substance: CALCIUM
     Indication: ROUTINE HEALTH MAINTENANCE
     Dosage: 600 MG, 2X/DAY
     Dates: start: 2002
  3. ASPIRIN. [Concomitant]
     Active Substance: ASPIRIN
     Indication: ROUTINE HEALTH MAINTENANCE
     Dosage: 81 MG, DAILY
     Dates: start: 2002
  4. FISH OIL [Concomitant]
     Active Substance: FISH OIL
     Indication: ROUTINE HEALTH MAINTENANCE
     Dosage: UNK, DAILY
     Dates: start: 200311

REACTIONS (2)
  - Cataract [Unknown]
  - Type 2 diabetes mellitus [Not Recovered/Not Resolved]

NARRATIVE: CASE EVENT DATE: 200501
